FAERS Safety Report 5817218-3 (Version None)
Quarter: 2008Q3

REPORT INFORMATION
  Report Type: 
  Country: None (occurrence: None)
  Receive Date: 20080722
  Receipt Date: 20080514
  Transmission Date: 20090109
  Serious: No
  Sender: FDA-Public Use
  Company Number: US-BAYER-200822913NA

PATIENT
  Age: 27 Year
  Sex: Female
  Weight: 59 kg

DRUGS (1)
  1. MIRENA [Suspect]
     Indication: CONTRACEPTION
     Route: 015
     Dates: start: 20060712, end: 20080502

REACTIONS (3)
  - ABDOMINAL PAIN [None]
  - ABDOMINAL PAIN LOWER [None]
  - IUCD COMPLICATION [None]
